FAERS Safety Report 12674396 (Version 1)
Quarter: 2016Q3

REPORT INFORMATION
  Report Type: Spontaneous
  Country: US (occurrence: US)
  Receive Date: 20160823
  Receipt Date: 20160823
  Transmission Date: 20161109
  Serious: No
  Sender: FDA-Public Use
  Company Number: US-FRI-1000086756

PATIENT
  Sex: Male
  Weight: 46.36 kg

DRUGS (4)
  1. SAPHRIS [Suspect]
     Active Substance: ASENAPINE MALEATE
     Indication: OPPOSITIONAL DEFIANT DISORDER
     Dosage: 7.5MG IN AM AND PM
     Route: 048
     Dates: start: 20160805
  2. SYNTHROID [Concomitant]
     Active Substance: LEVOTHYROXINE SODIUM
  3. SAPHRIS [Suspect]
     Active Substance: ASENAPINE MALEATE
     Indication: BIPOLAR DISORDER
     Dosage: 10 MG
     Route: 048
  4. SAPHRIS [Suspect]
     Active Substance: ASENAPINE MALEATE
     Indication: ATTENTION DEFICIT/HYPERACTIVITY DISORDER
     Dosage: 7.5MG IN AM AND PM
     Route: 048

REACTIONS (6)
  - Headache [Not Recovered/Not Resolved]
  - Product taste abnormal [Not Recovered/Not Resolved]
  - Product use issue [Not Recovered/Not Resolved]
  - Somnolence [Not Recovered/Not Resolved]
  - Off label use [Not Recovered/Not Resolved]
  - Abdominal pain upper [Not Recovered/Not Resolved]
